FAERS Safety Report 7911469-X (Version None)
Quarter: 2011Q4

REPORT INFORMATION
  Report Type: 
  Country: None (occurrence: None)
  Receive Date: 20111114
  Receipt Date: 20111111
  Transmission Date: 20120403
  Serious: Yes (Hospitalization)
  Sender: FDA-Public Use
  Company Number: CH-BAYER-2011-109086

PATIENT
  Age: 87 Year
  Sex: Male

DRUGS (6)
  1. AVODART [Concomitant]
  2. CONCOR [Concomitant]
  3. ZOLPIDEM [Concomitant]
  4. IRBESARTAN AND HYDROCHLOROTHIAZIDE [Concomitant]
     Dosage: UNK
  5. XARELTO [Interacting]
     Indication: HIP ARTHROPLASTY
     Dosage: 10 MG, QD
     Route: 048
     Dates: start: 20110801, end: 20110912
  6. ASPIRIN [Suspect]
     Dosage: UNK
     Route: 048
     Dates: end: 20110912

REACTIONS (2)
  - DUODENAL ULCER HAEMORRHAGE [None]
  - ANAEMIA [None]
